FAERS Safety Report 6587614-8 (Version None)
Quarter: 2010Q1

REPORT INFORMATION
  Report Type: 
  Country: None (occurrence: None)
  Receive Date: 20100218
  Receipt Date: 20100216
  Transmission Date: 20100710
  Serious: Yes (Death, Life-Threatening, Hospitalization)
  Sender: FDA-Public Use
  Company Number: US-ELI_LILLY_AND_COMPANY-US200909003468

PATIENT
  Sex: Male
  Weight: 85.306 kg

DRUGS (11)
  1. PEMETREXED [Suspect]
     Indication: NON-SMALL CELL LUNG CANCER STAGE IV
     Dosage: 500 MG/M2, OTHER
     Route: 042
     Dates: start: 20090904, end: 20090904
  2. CARBOPLATIN [Suspect]
     Indication: NON-SMALL CELL LUNG CANCER STAGE IV
     Dosage: 6 D/F, OTHER
     Route: 042
     Dates: start: 20090904, end: 20090904
  3. BEVACIZUMAB [Suspect]
     Indication: NON-SMALL CELL LUNG CANCER STAGE IV
     Dosage: 15 MG/KG, OTHER
     Route: 042
     Dates: start: 20090904, end: 20090904
  4. NORCO [Concomitant]
     Indication: PAIN
     Dates: start: 20090731
  5. MEGESTROL ACETATE [Concomitant]
     Indication: DECREASED APPETITE
     Dates: start: 20090822
  6. DURAGESIC-100 [Concomitant]
     Indication: PAIN
     Dates: start: 20090904
  7. FLUCONAZOLE [Concomitant]
     Indication: FUNGAL INFECTION
     Dosage: UNK, UNK
     Dates: start: 20090901, end: 20090907
  8. DEXAMETHASONE [Concomitant]
     Indication: PROPHYLAXIS
     Dosage: UNK, UNK
     Dates: start: 20090824, end: 20090911
  9. FOLIC ACID [Concomitant]
     Indication: PROPHYLAXIS
     Dosage: UNK, UNK
     Dates: start: 20090824, end: 20090911
  10. VITAMIN B-12 [Concomitant]
     Indication: PROPHYLAXIS
     Dates: start: 20090824, end: 20090911
  11. NEXIUM [Concomitant]

REACTIONS (7)
  - HEPATIC FUNCTION ABNORMAL [None]
  - LEUKOPENIA [None]
  - PERITONITIS [None]
  - RENAL FAILURE ACUTE [None]
  - RESPIRATORY FAILURE [None]
  - SEPSIS [None]
  - THROMBOCYTOPENIA [None]
